FAERS Safety Report 18814569 (Version 1)
Quarter: 2021Q1

REPORT INFORMATION
  Report Type: Spontaneous
  Country: US (occurrence: US)
  Receive Date: 20210130
  Receipt Date: 20210130
  Transmission Date: 20210419
  Serious: Yes (Hospitalization)
  Sender: FDA-Public Use
  Company Number: None

PATIENT
  Age: 69 Year
  Sex: Female
  Weight: 81.19 kg

DRUGS (16)
  1. OXYBUTYNIN CHLORIDE. [Concomitant]
     Active Substance: OXYBUTYNIN CHLORIDE
  2. OXYCONTIN [Concomitant]
     Active Substance: OXYCODONE HYDROCHLORIDE
  3. ATIVAN [Concomitant]
     Active Substance: LORAZEPAM
  4. NEURONTIN [Concomitant]
     Active Substance: GABAPENTIN
  5. OTEZLA [Concomitant]
     Active Substance: APREMILAST
  6. VISTARIL [Concomitant]
     Active Substance: HYDROXYZINE PAMOATE
  7. COZAAR [Concomitant]
     Active Substance: LOSARTAN POTASSIUM
  8. HUMALOG [Concomitant]
     Active Substance: INSULIN LISPRO
  9. TRAMADOL HCL [Concomitant]
     Active Substance: TRAMADOL HYDROCHLORIDE
  10. AMBIEN [Concomitant]
     Active Substance: ZOLPIDEM TARTRATE
  11. HERCEPTIN [Concomitant]
     Active Substance: TRASTUZUMAB
  12. VITAMIN K2 [Concomitant]
     Active Substance: MENAQUINONE 6
  13. ONDANSETRON HCL [Concomitant]
     Active Substance: ONDANSETRON HYDROCHLORIDE
  14. CAPECITABINE. [Suspect]
     Active Substance: CAPECITABINE
     Indication: BREAST CANCER
     Route: 048
     Dates: start: 20201214, end: 20210105
  15. PREDNISONE. [Concomitant]
     Active Substance: PREDNISONE
  16. TYLENOL WITH CODEINE [Concomitant]
     Active Substance: ACETAMINOPHEN\CODEINE PHOSPHATE

REACTIONS (2)
  - COVID-19 [None]
  - Therapy interrupted [None]

NARRATIVE: CASE EVENT DATE: 20210105
